FAERS Safety Report 9196326 (Version 3)
Quarter: 2013Q2

REPORT INFORMATION
  Report Type: Spontaneous
  Country: IT (occurrence: IT)
  Receive Date: 20130328
  Receipt Date: 20130513
  Transmission Date: 20140414
  Serious: Yes (Death, Hospitalization)
  Sender: FDA-Public Use
  Company Number: IT-MYLANLABS-2013S1005939

PATIENT
  Age: 64 Year
  Sex: Female

DRUGS (4)
  1. VANCOMYCIN [Suspect]
     Indication: SURGICAL PRECONDITIONING
     Route: 042
     Dates: start: 20130214, end: 20130217
  2. EVOLTRA [Suspect]
     Indication: SURGICAL PRECONDITIONING
     Dosage: CYCLIC
     Route: 042
     Dates: start: 20130202, end: 20130206
  3. THYMOGLOBULINE [Concomitant]
     Indication: SURGICAL PRECONDITIONING
     Dosage: 5 MG/ML POWDER PER CONCENTRATE PER INFUSION SOLUTION : 1 VIAL 10 ML
     Dates: start: 20130204, end: 20130206
  4. TREOSULFAN [Concomitant]
     Indication: PRODUCT USED FOR UNKNOWN INDICATION
     Dates: start: 20130202, end: 20130204

REACTIONS (2)
  - Toxic epidermal necrolysis [Recovering/Resolving]
  - Multi-organ failure [Fatal]
